FAERS Safety Report 10035763 (Version 1)
Quarter: 2014Q1

REPORT INFORMATION
  Report Type: Spontaneous
  Country: IT (occurrence: None)
  Receive Date: 20140321
  Receipt Date: 20140321
  Transmission Date: 20141002
  Serious: Yes (Other)
  Sender: FDA-Public Use
  Company Number: AUR-APL-2014-03457

PATIENT
  Age: 71 Year
  Sex: Male

DRUGS (13)
  1. CARVEDILOL [Suspect]
     Indication: HYPERTENSION
     Route: 048
     Dates: start: 20140115
  2. AMIODARONE [Suspect]
     Indication: ATRIAL FIBRILLATION
     Route: 048
     Dates: start: 20140115
  3. CAUMADIN [Suspect]
     Indication: ATRIAL FIBRILLATION
     Route: 048
     Dates: start: 20111006, end: 20140204
  4. PANTORC (PANTOPRAZOLE SODIUM SESQUIHYDRATE) [Concomitant]
  5. LANTUS (INSULIN GLARGINE) [Concomitant]
  6. XELEVIA (SITAGLIPTIN PHOSPHATE) [Concomitant]
  7. SPIRIVA (TIOTROPIUM BROMIDE) [Concomitant]
  8. LASIX (FUROSEMIDE) [Concomitant]
  9. COAPROVEL (KARVEA HCT) [Concomitant]
  10. METFORMIN (METFORMIN) [Concomitant]
  11. ATORVASTATIN (ATORVASTATIN) [Concomitant]
  12. ALLOPURINOL (ALLOPURINOL) [Suspect]
  13. SOTALOL (SOTALOL) [Concomitant]

REACTIONS (2)
  - Drug interaction [None]
  - International normalised ratio increased [None]
